FAERS Safety Report 7738512-5 (Version None)
Quarter: 2011Q3

REPORT INFORMATION
  Report Type: 
  Country: None (occurrence: None)
  Receive Date: 20110908
  Receipt Date: 20110830
  Transmission Date: 20111222
  Serious: Yes (Other)
  Sender: FDA-Public Use
  Company Number: US-ASTRAZENECA-2011SE52226

PATIENT
  Age: 684 Month
  Sex: Male
  Weight: 163.3 kg

DRUGS (1)
  1. SEROQUEL XR [Suspect]
     Route: 048
     Dates: end: 20110701

REACTIONS (2)
  - SUICIDAL IDEATION [None]
  - DRUG DOSE OMISSION [None]
